FAERS Safety Report 13640181 (Version 1)
Quarter: 2017Q2

REPORT INFORMATION
  Report Type: Other
  Country: GB (occurrence: AU)
  Receive Date: 20170609
  Receipt Date: 20170609
  Transmission Date: 20170830
  Serious: Yes (Hospitalization, Other)
  Sender: FDA-Public Use
  Company Number: AU-INTERNATIONAL MEDICATION SYSTEMS, LIMITED-2021782

PATIENT
  Age: 9 Year
  Sex: Male
  Weight: 32 kg

DRUGS (5)
  1. SALBUTAMOL [Concomitant]
     Active Substance: ALBUTEROL
     Route: 055
  2. EPINEPHRINE. [Suspect]
     Active Substance: EPINEPHRINE
     Route: 030
  3. EPINEPHRINE FIXED-DOSE AUTOINJECTOR [Suspect]
     Active Substance: EPINEPHRINE
     Indication: ANAPHYLACTIC REACTION
     Route: 030
  4. EPINEPHRINE. [Suspect]
     Active Substance: EPINEPHRINE
     Route: 040
  5. EPINEPHRINE. [Suspect]
     Active Substance: EPINEPHRINE
     Route: 042

REACTIONS (6)
  - Blood pressure increased [Recovered/Resolved]
  - Toxicity to various agents [Unknown]
  - Accidental overdose [Unknown]
  - Vomiting [Recovering/Resolving]
  - Sinus tachycardia [Unknown]
  - Agitation [Recovering/Resolving]
